FAERS Safety Report 7099256-9 (Version None)
Quarter: 2010Q4

REPORT INFORMATION
  Report Type: 
  Country: None (occurrence: None)
  Receive Date: 20101104
  Receipt Date: 20101020
  Transmission Date: 20110411
  Serious: Yes (Death, Hospitalization)
  Sender: FDA-Public Use
  Company Number: APP201000873

PATIENT
  Age: 72 Year
  Sex: Female

DRUGS (21)
  1. HEPARIN SODIUM INJECTION [Suspect]
     Indication: DIALYSIS
     Dosage: INTRAVENOUS
     Route: 042
     Dates: start: 20080101, end: 20080201
  2. METOPROLOL SUCCINATE [Concomitant]
  3. CALCIUM ACETATE (CALCIUM ACETATE) [Concomitant]
  4. INSULIN GLARGINE (INSULIN GLARGINE) [Concomitant]
  5. FLUOXETINE HCL [Concomitant]
  6. DOCUSATE (DOCUSATE) [Concomitant]
  7. FAMOTIDINE [Concomitant]
  8. INSULIN LISPRO (INSULIN LISPRO) [Concomitant]
  9. LOVENOX [Concomitant]
  10. MANNITOL [Concomitant]
  11. GLYCERYL TRINITRATE (GLYCERYL TRINITRATE) [Concomitant]
  12. EPOETIN ALFA (EPOETIN ALFA) [Concomitant]
  13. BACITRACIN [Concomitant]
  14. DOXERCALCIFEROL (DOXERCALCIFEROL) [Concomitant]
  15. SACCHARATED IRON OXIDE (SACCHARATED IRON OXIDE) [Concomitant]
  16. ACETAMINOPHEN [Concomitant]
  17. LISINOPRIL [Concomitant]
  18. FLUTICASONE PROPIONATE [Concomitant]
  19. KAYEXALATE [Concomitant]
  20. VANCOMYCIN [Concomitant]
  21. TIOTROPIUM BROMIDE (TIOTROPIUM BROMIDE) [Concomitant]

REACTIONS (8)
  - ASTHENIA [None]
  - BLOOD PRESSURE INCREASED [None]
  - CARDIAC FAILURE CONGESTIVE [None]
  - FALL [None]
  - HYPERKALAEMIA [None]
  - NAUSEA [None]
  - SUBDURAL HAEMATOMA [None]
  - VOMITING [None]
